FAERS Safety Report 13912607 (Version 4)
Quarter: 2018Q1

REPORT INFORMATION
  Report Type: Report from Study
  Country: IN (occurrence: IN)
  Receive Date: 20170828
  Receipt Date: 20180301
  Transmission Date: 20180508
  Serious: Yes (Hospitalization, Other)
  Sender: FDA-Public Use
  Company Number: PHHY2017IN125803

PATIENT
  Age: 23 Year
  Sex: Female

DRUGS (2)
  1. SCAPHO [Suspect]
     Active Substance: SECUKINUMAB
     Dosage: 300 MG, QMO (FIFTH DOSE)
     Route: 058
     Dates: start: 20170722, end: 20170828
  2. SCAPHO [Suspect]
     Active Substance: SECUKINUMAB
     Indication: ANKYLOSING SPONDYLITIS
     Dosage: 300 MG, QMO (FIRST DOSE)
     Route: 058
     Dates: start: 20170527

REACTIONS (5)
  - Gastric infection [Unknown]
  - General physical health deterioration [Unknown]
  - Immune system disorder [Unknown]
  - Diarrhoea [Unknown]
  - Drug ineffective [Recovering/Resolving]

NARRATIVE: CASE EVENT DATE: 20170812
